FAERS Safety Report 8988099 (Version 1)
Quarter: 2012Q4

REPORT INFORMATION
  Report Type: 
  Country: US (occurrence: US)
  Receive Date: 20121227
  Receipt Date: 20121227
  Transmission Date: 20130627
  Serious: No
  Sender: FDA-Public Use
  Company Number: US-PFIZER INC-2012218881

PATIENT
  Age: 49 Year
  Sex: Female

DRUGS (3)
  1. EFFEXOR XR [Suspect]
     Indication: CHRONIC DEPRESSION
     Dosage: 75 mg, 1x/day
  2. PREMARIN [Concomitant]
     Dosage: 0.625 (no units provided), 1 tab daily
  3. PREMARIN [Concomitant]
     Dosage: 0.3 (no units provided), 1 tab daily

REACTIONS (1)
  - Depression [Not Recovered/Not Resolved]
